FAERS Safety Report 23315476 (Version 1)
Quarter: 2023Q4

REPORT INFORMATION
  Report Type: Spontaneous
  Country: US (occurrence: US)
  Receive Date: 20231219
  Receipt Date: 20231219
  Transmission Date: 20240109
  Serious: No
  Sender: FDA-Public Use
  Company Number: US-ORG100016242-2023000067

PATIENT
  Sex: Male

DRUGS (2)
  1. EXPAREL [Suspect]
     Active Substance: BUPIVACAINE
     Indication: Dental implantation
     Route: 065
  2. ARTICAINE [Suspect]
     Active Substance: ARTICAINE
     Indication: Dental implantation
     Dosage: NOT PROVIDED
     Route: 065

REACTIONS (2)
  - Therapeutic product effect delayed [Unknown]
  - Labelled drug-drug interaction medication error [Unknown]
